FAERS Safety Report 24575239 (Version 1)
Quarter: 2024Q4

REPORT INFORMATION
  Report Type: Spontaneous
  Country: US (occurrence: None)
  Receive Date: 20241030
  Receipt Date: 20241030
  Transmission Date: 20250115
  Serious: Yes (Death)
  Sender: Public
  Company Number: None

PATIENT
  Age: 19 Year
  Sex: Male

DRUGS (12)
  1. BOTOX [Suspect]
     Active Substance: ONABOTULINUMTOXINA
     Indication: Muscle spasticity
     Dosage: OTHER FREQUENCY : EVERY 90 DAYS;?
     Route: 030
  2. ALBUTEROL [Concomitant]
     Active Substance: ALBUTEROL
  3. BACLOFEN [Concomitant]
     Active Substance: BACLOFEN
  4. CLOBAZAM [Concomitant]
     Active Substance: CLOBAZAM
  5. SODIUM FLUORIDE\STANNOUS FLUORIDE [Concomitant]
     Active Substance: SODIUM FLUORIDE\STANNOUS FLUORIDE
  6. GLYCOPYRROLATE [Concomitant]
     Active Substance: GLYCOPYRROLATE
  7. LEVETIRACETAM [Concomitant]
     Active Substance: LEVETIRACETAM
  8. LORATADINE [Concomitant]
     Active Substance: LORATADINE
  9. multiviatmin [Concomitant]
  10. PHENOBARBITAL [Concomitant]
     Active Substance: PHENOBARBITAL
  11. oolyeth glycol [Concomitant]
  12. TOPIRAMATE [Concomitant]
     Active Substance: TOPIRAMATE

REACTIONS (1)
  - Death [None]

NARRATIVE: CASE EVENT DATE: 20241025
